FAERS Safety Report 25253001 (Version 1)
Quarter: 2025Q2

REPORT INFORMATION
  Report Type: Spontaneous
  Country: CN (occurrence: CN)
  Receive Date: 20250430
  Receipt Date: 20250430
  Transmission Date: 20250716
  Serious: Yes (Disabling, Other)
  Sender: ABBVIE
  Company Number: CN-ABBVIE-6255253

PATIENT
  Age: 65 Year
  Sex: Male
  Weight: 69 kg

DRUGS (4)
  1. VENETOCLAX [Suspect]
     Active Substance: VENETOCLAX
     Indication: Mantle cell lymphoma
     Dosage: 200 MILLIGRAM
     Route: 048
     Dates: start: 20250403, end: 20250403
  2. VENETOCLAX [Suspect]
     Active Substance: VENETOCLAX
     Indication: Mantle cell lymphoma
     Dosage: 400 MILLIGRAM
     Route: 048
     Dates: start: 20250404, end: 20250414
  3. VENETOCLAX [Suspect]
     Active Substance: VENETOCLAX
     Indication: Mantle cell lymphoma
     Dosage: 100 MILLIGRAM
     Route: 048
     Dates: start: 20250402, end: 20250402
  4. TEMOZOLOMIDE [Suspect]
     Active Substance: TEMOZOLOMIDE
     Indication: Mantle cell lymphoma
     Dosage: 300 MILLIGRAM
     Route: 048
     Dates: start: 20250405, end: 20250409

REACTIONS (3)
  - White blood cell count decreased [Recovering/Resolving]
  - Myelosuppression [Unknown]
  - Granulocyte count decreased [Recovering/Resolving]

NARRATIVE: CASE EVENT DATE: 20250416
